FAERS Safety Report 4447483-9 (Version None)
Quarter: 2004Q3

REPORT INFORMATION
  Report Type: 
  Country: None (occurrence: None)
  Receive Date: 20040823
  Receipt Date: 20040510
  Transmission Date: 20050211
  Serious: No
  Sender: FDA-Public Use
  Company Number: PHEH2004US05135

PATIENT
  Age: 44 Year
  Sex: Female

DRUGS (3)
  1. ZELNORM [Suspect]
     Indication: IRRITABLE BOWEL SYNDROME
     Dosage: 6 MG,  BID, ORAL
     Route: 048
     Dates: start: 20040401
  2. DEPAKOTE [Concomitant]
  3. PROTONIX [Concomitant]

REACTIONS (2)
  - ABDOMINAL PAIN [None]
  - WEIGHT INCREASED [None]
